FAERS Safety Report 26090474 (Version 2)
Quarter: 2025Q4

REPORT INFORMATION
  Report Type: Spontaneous
  Country: US (occurrence: US)
  Receive Date: 20251126
  Receipt Date: 20251230
  Transmission Date: 20260118
  Serious: No
  Sender: TOLMAR
  Company Number: US-Tolmar-TLM-2025-08733

PATIENT

DRUGS (3)
  1. ELIGARD [Suspect]
     Active Substance: LEUPROLIDE ACETATE
     Indication: Prostate cancer
     Dosage: DOSE NOT ADMINISTERED ?15498CUS EXP 04/2027?SN: 9932448240164?GTIN: 00362935227106?SYRINGE A: EXP (D
  2. ELIGARD [Suspect]
     Active Substance: LEUPROLIDE ACETATE
     Dosage: REPLACEMENT DOSE GIVEN
  3. DEVICE [Suspect]
     Active Substance: DEVICE
     Indication: Prostate cancer
     Dosage: 15498CUS EXP 04/2027?SN: 9932448240164?GTIN: 00362935227106?SYRINGE A: EXP (DISCARDED)?SYRINGE B: EX

REACTIONS (2)
  - Intercepted product preparation error [Unknown]
  - Device leakage [Unknown]
